FAERS Safety Report 5288127-6 (Version None)
Quarter: 2007Q2

REPORT INFORMATION
  Report Type: 
  Country: None (occurrence: None)
  Receive Date: 20070402
  Receipt Date: 20070402
  Transmission Date: 20071010
  Serious: No
  Sender: FDA-Public Use
  Company Number: None

PATIENT
  Age: 72 Year
  Sex: Male
  Weight: 104.6 kg

DRUGS (2)
  1. FUROSEMIDE [Suspect]
     Indication: OEDEMA PERIPHERAL
     Dosage: 40MG  BID  PO
     Route: 048
     Dates: start: 20060208, end: 20070322
  2. LISINOPRIL [Suspect]
     Indication: DIABETES MELLITUS
     Dosage: 10MG  QD  PO
     Route: 048
     Dates: start: 20040122, end: 20070322

REACTIONS (3)
  - FALL [None]
  - GAIT DISTURBANCE [None]
  - HYPOTENSION [None]
